FAERS Safety Report 4620499-5 (Version None)
Quarter: 2005Q1

REPORT INFORMATION
  Report Type: 
  Country: None (occurrence: None)
  Receive Date: 20050321
  Receipt Date: 20050321
  Transmission Date: 20050727
  Serious: No
  Sender: FDA-Public Use
  Company Number: None

PATIENT
  Sex: Male
  Weight: 91 kg

DRUGS (9)
  1. PRAZOSIN HCL [Suspect]
     Indication: NIGHTMARE
     Dosage: 3MG   QHS  ORAL
     Route: 048
     Dates: start: 20050311, end: 20050315
  2. PRAZOSIN HCL [Suspect]
     Indication: POST-TRAUMATIC STRESS DISORDER
     Dosage: 3MG   QHS  ORAL
     Route: 048
     Dates: start: 20050311, end: 20050315
  3. NAPROXEN [Concomitant]
  4. ZOCOR [Concomitant]
  5. EFFEXOR [Concomitant]
  6. ASPIRIN [Concomitant]
  7. FISH OIL [Concomitant]
  8. PRINZIDE [Concomitant]
  9. METFORMIN [Concomitant]

REACTIONS (1)
  - HYPOTENSION [None]
